FAERS Safety Report 4737621-2 (Version None)
Quarter: 2005Q3

REPORT INFORMATION
  Report Type: 
  Country: None (occurrence: None)
  Receive Date: 20050802
  Receipt Date: 20050721
  Transmission Date: 20060218
  Serious: Yes (Life-Threatening, Hospitalization, Disabling)
  Sender: FDA-Public Use
  Company Number: S05-FRA-02035-01

PATIENT
  Age: 78 Year
  Sex: Female
  Weight: 65 kg

DRUGS (6)
  1. CITALOPRAM HYDROBROMIDE [Suspect]
     Indication: DEPRESSION
     Dosage: 20 MG QD PO
     Route: 048
     Dates: start: 20020506, end: 20050131
  2. FORADIL [Concomitant]
  3. MIFLASONE                 (BECLOMETASONE) [Concomitant]
  4. COZAAR [Concomitant]
  5. ALDALIX [Concomitant]
  6. ZOLPIDEM [Concomitant]

REACTIONS (6)
  - BRONCHIAL HYPERACTIVITY [None]
  - COR PULMONALE ACUTE [None]
  - LUNG NEOPLASM [None]
  - PULMONARY ARTERY THROMBOSIS [None]
  - PULMONARY EMBOLISM [None]
  - RESPIRATORY FAILURE [None]
